FAERS Safety Report 4451833-7 (Version None)
Quarter: 2004Q3

REPORT INFORMATION
  Report Type: 
  Country: None (occurrence: None)
  Receive Date: 20040915
  Receipt Date: 20040915
  Transmission Date: 20050211
  Serious: No
  Sender: FDA-Public Use
  Company Number: None

PATIENT
  Age: 67 Year
  Sex: Male
  Weight: 98.4306 kg

DRUGS (11)
  1. EZETIMIBE 10 MG [Suspect]
     Indication: DIABETES MELLITUS
     Dosage: 10 MG QD
     Dates: start: 20040224, end: 20040311
  2. EZETIMIBE 10 MG [Suspect]
     Indication: HYPERLIPIDAEMIA
     Dosage: 10 MG QD
     Dates: start: 20040224, end: 20040311
  3. ASPIRIN [Concomitant]
  4. ATENOLOL [Concomitant]
  5. HYDROCHLOROTHIAZIDE [Concomitant]
  6. ATORVASTATIN CALCIUM [Concomitant]
  7. LISINOPRIL [Concomitant]
  8. KCL TAB [Concomitant]
  9. PRIMIDONE [Concomitant]
  10. B12 [Concomitant]
  11. ROSIGLITAZONE [Concomitant]

REACTIONS (2)
  - BLOOD CREATINE PHOSPHOKINASE INCREASED [None]
  - MYALGIA [None]
